FAERS Safety Report 11686448 (Version 1)
Quarter: 2015Q4

REPORT INFORMATION
  Report Type: Spontaneous
  Country: FR (occurrence: FR)
  Receive Date: 20151030
  Receipt Date: 20151030
  Transmission Date: 20160304
  Serious: Yes (Hospitalization)
  Sender: FDA-Public Use
  Company Number: FR-TEVA-604478ISR

PATIENT
  Age: 13 Year
  Sex: Female

DRUGS (2)
  1. NORMACOL [Concomitant]
     Active Substance: KARAYA GUM
     Route: 065
  2. ANTADYS [Suspect]
     Active Substance: FLURBIPROFEN
     Indication: CHEST PAIN
     Route: 048
     Dates: start: 20150721, end: 20150722

REACTIONS (3)
  - Abdominal pain lower [Recovered/Resolved]
  - Abdominal pain [Recovered/Resolved]
  - Blood creatinine increased [Recovered/Resolved]

NARRATIVE: CASE EVENT DATE: 20150723
